FAERS Safety Report 11571822 (Version 2)
Quarter: 2015Q4

REPORT INFORMATION
  Report Type: Spontaneous
  Country: US (occurrence: US)
  Receive Date: 20150916
  Receipt Date: 20151027
  Transmission Date: 20160304
  Serious: No
  Sender: FDA-Public Use
  Company Number: US-ELI_LILLY_AND_COMPANY-US200909006950

PATIENT
  Sex: Female

DRUGS (6)
  1. SYNTHROID [Concomitant]
     Active Substance: LEVOTHYROXINE SODIUM
  2. VITAMINS [Concomitant]
     Active Substance: VITAMINS
  3. LORAZEPAM. [Concomitant]
     Active Substance: LORAZEPAM
  4. FORTEO [Suspect]
     Active Substance: TERIPARATIDE
     Dates: start: 2009
  5. FORTEO [Suspect]
     Active Substance: TERIPARATIDE
     Indication: OSTEOPOROSIS
     Dosage: UNK, UNK
     Dates: start: 2008, end: 2009
  6. CALCIUM [Concomitant]
     Active Substance: CALCIUM

REACTIONS (8)
  - Fatigue [Not Recovered/Not Resolved]
  - Hypothyroidism [Unknown]
  - Thyroid disorder [Not Recovered/Not Resolved]
  - Back pain [Recovered/Resolved]
  - Anxiety [Unknown]
  - Nephrolithiasis [Not Recovered/Not Resolved]
  - Calculus urethral [Unknown]
  - Asthenia [Not Recovered/Not Resolved]

NARRATIVE: CASE EVENT DATE: 2008
